FAERS Safety Report 7814290-6 (Version None)
Quarter: 2011Q4

REPORT INFORMATION
  Report Type: 
  Country: None (occurrence: None)
  Receive Date: 20111014
  Receipt Date: 20111010
  Transmission Date: 20120403
  Serious: Yes (Other)
  Sender: FDA-Public Use
  Company Number: NZ-ABBOTT-11P-118-0724205-00

PATIENT
  Age: 6 Week

DRUGS (2)
  1. HUMIRA [Suspect]
     Route: 063
  2. HUMIRA [Suspect]
     Indication: MATERNAL EXPOSURE DURING PREGNANCY
     Route: 064

REACTIONS (3)
  - EXPOSURE DURING BREAST FEEDING [None]
  - CONVULSION [None]
  - MATERNAL EXPOSURE DURING PREGNANCY [None]
